FAERS Safety Report 19408567 (Version 1)
Quarter: 2021Q2

REPORT INFORMATION
  Report Type: Spontaneous
  Country: DE (occurrence: DE)
  Receive Date: 20210612
  Receipt Date: 20210612
  Transmission Date: 20210717
  Serious: Yes (Hospitalization)
  Sender: FDA-Public Use
  Company Number: DE-TEVA-2021-DE-1920762

PATIENT
  Age: 81 Year
  Sex: Male

DRUGS (12)
  1. METAMIZOL [Concomitant]
     Active Substance: METAMIZOLE SODIUM
     Dosage: 500 MG, IF NECESSARY IN THE MORNING AND AT NIGHT
  2. TIOBLIS 10 MG/10 MG FILMTABLETTEN [Concomitant]
     Dosage: 1 DOSAGE FORMS DAILY; 10|10 MG, 0?0?1?0
  3. PANTOPRAZOL [Concomitant]
     Active Substance: PANTOPRAZOLE SODIUM
     Dosage: 40 MILLIGRAM DAILY; 1?0?0?0
  4. CLOPIDOGREL [Suspect]
     Active Substance: CLOPIDOGREL BISULFATE
     Dosage: 75 MILLIGRAM DAILY; 1?0?0?0
  5. METHOTREXAT [Suspect]
     Active Substance: METHOTREXATE
     Dosage: 20 MG / ML, 1 TIME A WEEK IN THE MORNING
  6. VALSARTAN. [Concomitant]
     Active Substance: VALSARTAN
     Dosage: 80 MILLIGRAM DAILY; 1?0?0?0
  7. SPIRIVA 18 MIKROGRAMM + HANDIHALER [Concomitant]
     Dosage: 18 MICROGRAM DAILY; 1?0?0?0CAPSULES FOR INHALATION
  8. BUDESONID [Concomitant]
     Active Substance: BUDESONIDE
     Dosage: 2 DOSAGE FORMS DAILY; 1?0?1?0, INHALATION POWDER
  9. IVABRADIN [Concomitant]
     Active Substance: IVABRADINE
     Dosage: 5 MILLIGRAM DAILY; 1?0?1?0
  10. VIGANTOLETTEN 1000I.E. [Concomitant]
     Active Substance: CHOLECALCIFEROL
     Dosage: 25 MICROGRAM DAILY; 1?0?0?0
  11. FOLSAEURE [Concomitant]
     Active Substance: FOLIC ACID
     Dosage: 5 MG, 1 TIME A WEEK IN THE MORNING
  12. PREDNISOLON [Suspect]
     Active Substance: PREDNISOLONE
     Dosage: 5 MILLIGRAM DAILY; 1?0?0?0

REACTIONS (1)
  - Dyspnoea [Unknown]

NARRATIVE: CASE EVENT DATE: 20210302
